FAERS Safety Report 17872724 (Version 1)
Quarter: 2020Q2

REPORT INFORMATION
  Report Type: Spontaneous
  Country: US (occurrence: US)
  Receive Date: 20200608
  Receipt Date: 20200608
  Transmission Date: 20200714
  Serious: Yes (Other)
  Sender: FDA-Public Use
  Company Number: US-MYLANLABS-2020M1054461

PATIENT
  Sex: Female

DRUGS (1)
  1. CLOBAZAM ORAL SUSPENSION [Suspect]
     Active Substance: CLOBAZAM
     Indication: SEIZURE
     Dosage: TAKING 3.5 ML INSTEAD OF 4 ML PRESCRIBED
     Route: 048

REACTIONS (3)
  - Product quality issue [Unknown]
  - Drug ineffective [Recovering/Resolving]
  - Incorrect dose administered [Recovering/Resolving]
